FAERS Safety Report 20691639 (Version 3)
Quarter: 2022Q2

REPORT INFORMATION
  Report Type: Report from Study
  Country: US (occurrence: US)
  Receive Date: 20220408
  Receipt Date: 20220511
  Transmission Date: 20220720
  Serious: Yes (Hospitalization)
  Sender: FDA-Public Use
  Company Number: US-JNJFOC-20220405261

PATIENT
  Age: 67 Year
  Sex: Male
  Weight: 81.9 kg

DRUGS (2)
  1. DARATUMUMAB [Suspect]
     Active Substance: DARATUMUMAB
     Indication: Plasma cell myeloma
     Dosage: CYCLE 1 + 2 WEEKLY; CYCLE 3 TO 6 BI-WEEKLY/Q2 WEEKS; CYCLE 7+ MONTHLY
     Route: 058
     Dates: start: 20210914, end: 20220303
  2. POMALIDOMIDE [Suspect]
     Active Substance: POMALIDOMIDE
     Indication: Plasma cell myeloma
     Route: 048
     Dates: start: 20211014, end: 20220323

REACTIONS (2)
  - Metapneumovirus pneumonia [Recovering/Resolving]
  - Sinusitis [Recovering/Resolving]

NARRATIVE: CASE EVENT DATE: 20220326
